FAERS Safety Report 5940779-0 (Version None)
Quarter: 2008Q4

REPORT INFORMATION
  Report Type: 
  Country: None (occurrence: None)
  Receive Date: 20081104
  Receipt Date: 20081027
  Transmission Date: 20090506
  Serious: Yes (Hospitalization)
  Sender: FDA-Public Use
  Company Number: US-TYCO HEALTHCARE/MALLINCKRODT-T200801733

PATIENT

DRUGS (14)
  1. METHADOSE [Suspect]
  2. SUBOXONE [Suspect]
  3. MORPHINE [Concomitant]
  4. INSULIN [Concomitant]
  5. DOXEPIN HCL [Concomitant]
  6. RAMIPRIL [Concomitant]
  7. DOXAZOSIN MESYLATE [Concomitant]
  8. IBUPROFEN TABLETS [Concomitant]
  9. TOLTERODINE [Concomitant]
  10. GABAPENTIN [Concomitant]
  11. METFORMIN HCL [Concomitant]
  12. AMITRIPTYLINE HCL [Concomitant]
  13. FLUTICASONE PROPIONATE [Concomitant]
  14. REPAGLINIDE [Concomitant]

REACTIONS (1)
  - SEROTONIN SYNDROME [None]
